FAERS Safety Report 4528956-7 (Version None)
Quarter: 2004Q4

REPORT INFORMATION
  Report Type: 
  Country: None (occurrence: None)
  Receive Date: 20041214
  Receipt Date: 20041124
  Transmission Date: 20050328
  Serious: Yes (Other)
  Sender: FDA-Public Use
  Company Number: B0358177A

PATIENT
  Age: 61 Year
  Sex: Male

DRUGS (4)
  1. ALKERAN [Suspect]
     Dosage: SEE DOSAGE TEXT
  2. CYCLOPHOSPHAMIDE [Suspect]
     Dosage: INTRAVENOUS
     Route: 042
  3. ETOPOSIDE [Suspect]
     Dosage: INTRAVENOUS
     Route: 042
  4. FILGRASTIM [Concomitant]

REACTIONS (3)
  - BLOOD STEM CELL HARVEST FAILURE [None]
  - BONE MARROW DISORDER [None]
  - STEM CELL TRANSPLANT [None]
